FAERS Safety Report 18860682 (Version 3)
Quarter: 2021Q1

REPORT INFORMATION
  Report Type: Spontaneous
  Country: US (occurrence: US)
  Receive Date: 20210208
  Receipt Date: 20210218
  Transmission Date: 20210420
  Serious: No
  Sender: FDA-Public Use
  Company Number: US-PFIZER INC-2021112291

PATIENT
  Age: 84 Year
  Sex: Female

DRUGS (1)
  1. VYNDAMAX [Suspect]
     Active Substance: TAFAMIDIS
     Indication: CARDIAC AMYLOIDOSIS
     Dosage: 61 MG, UNK

REACTIONS (9)
  - Abdominal distension [Unknown]
  - Nausea [Unknown]
  - Arthritis [Unknown]
  - Headache [Unknown]
  - Balance disorder [Unknown]
  - Back pain [Unknown]
  - Muscle spasms [Unknown]
  - Weight decreased [Unknown]
  - Dizziness [Unknown]
